FAERS Safety Report 24115997 (Version 1)
Quarter: 2024Q3

REPORT INFORMATION
  Report Type: Report from Study
  Country: US (occurrence: US)
  Receive Date: 20240722
  Receipt Date: 20240722
  Transmission Date: 20241016
  Serious: Yes (Hospitalization, Other)
  Sender: UCB
  Company Number: US-UCBSA-2024029983

PATIENT
  Age: 78 Year
  Sex: Male

DRUGS (1)
  1. BRIVARACETAM [Suspect]
     Active Substance: BRIVARACETAM
     Indication: Seizure
     Dosage: 50 MILLIGRAM, 2X/DAY (BID) 1 TABLET

REACTIONS (4)
  - Neoplasm malignant [Not Recovered/Not Resolved]
  - Tumour excision [Not Recovered/Not Resolved]
  - Chemotherapy [Not Recovered/Not Resolved]
  - Product container seal issue [Unknown]

NARRATIVE: CASE EVENT DATE: 20230501
